FAERS Safety Report 16176386 (Version 8)
Quarter: 2019Q3

REPORT INFORMATION
  Report Type: Report from Study
  Country: JP (occurrence: JP)
  Receive Date: 20190409
  Receipt Date: 20190920
  Transmission Date: 20191004
  Serious: Yes (Life-Threatening, Other)
  Sender: FDA-Public Use
  Company Number: JP-ASTELLAS-2019JP005715

PATIENT
  Age: 74 Year
  Sex: Male

DRUGS (9)
  1. ZANTAC [Concomitant]
     Active Substance: RANITIDINE HYDROCHLORIDE
     Indication: PROPHYLAXIS
     Dosage: 150 MG/DAY, UNKNOWN FREQ.
     Route: 048
  2. SAMSCA [Concomitant]
     Active Substance: TOLVAPTAN
     Indication: GENERALISED OEDEMA
     Dosage: 7.5 MG/DAY, UNKNOWN FREQ.
     Route: 048
  3. TRAZODONE [Concomitant]
     Active Substance: TRAZODONE HYDROCHLORIDE
     Indication: INSOMNIA
     Dosage: 50 MG/DAY, UNKNOWN FREQ.
     Route: 048
  4. MAXIPIME [Concomitant]
     Active Substance: CEFEPIME HYDROCHLORIDE
     Indication: SEPSIS
     Dosage: 4 G/DAY, UNKNOWN FREQ.
     Route: 065
     Dates: start: 20190119, end: 20190201
  5. ASP2215 [Suspect]
     Active Substance: GILTERITINIB
     Route: 048
     Dates: start: 20190201
  6. LASIX [Concomitant]
     Active Substance: FUROSEMIDE
     Indication: GENERALISED OEDEMA
     Dosage: 20 MG/DAY, UNKNOWN FREQ.
     Route: 065
     Dates: end: 20190204
  7. ASP2215 [Suspect]
     Active Substance: GILTERITINIB
     Indication: ACUTE MYELOID LEUKAEMIA
     Route: 048
     Dates: start: 20190116, end: 20190122
  8. ITRIZOLE [Concomitant]
     Active Substance: ITRACONAZOLE
     Indication: PROPHYLAXIS
     Dosage: 20 ML/DAY, UNKNOWN FREQ.
     Route: 048
  9. DAUNORUBICIN HYDROCHLORIDE. [Suspect]
     Active Substance: DAUNORUBICIN HYDROCHLORIDE
     Indication: ACUTE MYELOID LEUKAEMIA
     Dosage: 85 MG/DAY, KNOWN FREQ.
     Route: 042
     Dates: start: 20190107, end: 20190109

REACTIONS (2)
  - White blood cell count decreased [Recovering/Resolving]
  - Sepsis [Recovering/Resolving]

NARRATIVE: CASE EVENT DATE: 20190119
